FAERS Safety Report 10221539 (Version 1)
Quarter: 2014Q2

REPORT INFORMATION
  Report Type: Report from Study
  Country: BR (occurrence: BR)
  Receive Date: 20140606
  Receipt Date: 20140606
  Transmission Date: 20141212
  Serious: Yes (Other)
  Sender: FDA-Public Use
  Company Number: BR-BAXTER-2014BAX027229

PATIENT
  Age: 8 Year
  Sex: Male

DRUGS (2)
  1. FEIBA [Suspect]
     Indication: HAEMOPHILIA
     Dosage: PROPHYLAXIS
     Route: 065
  2. FEIBA [Suspect]
     Indication: HAEMORRHAGE PROPHYLAXIS

REACTIONS (4)
  - Traumatic haemorrhage [Recovered/Resolved]
  - Traumatic haemorrhage [Recovered/Resolved]
  - Traumatic haemorrhage [Recovered/Resolved]
  - Spontaneous haemorrhage [Recovered/Resolved]
